FAERS Safety Report 9633468 (Version 1)
Quarter: 2013Q4

REPORT INFORMATION
  Report Type: Spontaneous
  Country: US (occurrence: US)
  Receive Date: 20131021
  Receipt Date: 20131021
  Transmission Date: 20140711
  Serious: No
  Sender: FDA-Public Use
  Company Number: US-BAUSCH-BL-2013-003521

PATIENT
  Age: 62 Year
  Sex: Female

DRUGS (3)
  1. NEOMYCIN AND POLYMYXIN B SULFATES AND DEXAMETHASONE OPHTHALMIC SUSPENS [Suspect]
     Indication: CONJUNCTIVITIS
     Dosage: 1 DROP; FOUR TIMES DAILY; RIGHT EYE
     Route: 047
     Dates: start: 20130519
  2. NEOMYCIN AND POLYMYXIN B SULFATES AND DEXAMETHASONE OPHTHALMIC SUSPENS [Suspect]
     Dosage: 1 DROP; FOUR TIMES DAILY; RIGHT EYE
     Route: 047
     Dates: start: 20130519
  3. MACROBID [Suspect]
     Indication: URINARY TRACT INFECTION

REACTIONS (1)
  - Eye pain [Not Recovered/Not Resolved]
